FAERS Safety Report 17896444 (Version 1)
Quarter: 2020Q2

REPORT INFORMATION
  Report Type: Spontaneous
  Country: DE (occurrence: DE)
  Receive Date: 20200615
  Receipt Date: 20200615
  Transmission Date: 20200714
  Serious: Yes (Other)
  Sender: FDA-Public Use
  Company Number: NVSC2020DE165530

PATIENT
  Age: 17 Year
  Sex: Male

DRUGS (1)
  1. METHYLPREDNISOLONE. [Suspect]
     Active Substance: METHYLPREDNISOLONE
     Indication: ANTI-GLOMERULAR BASEMENT MEMBRANE DISEASE
     Dosage: 250 MG (PER DOSE INTRAVENOUSLY FOR 3 DAYS)
     Route: 040

REACTIONS (2)
  - Anti-glomerular basement membrane disease [Unknown]
  - Product use in unapproved indication [Unknown]
